FAERS Safety Report 15281888 (Version 2)
Quarter: 2020Q3

REPORT INFORMATION
  Report Type: Spontaneous
  Country: US (occurrence: US)
  Receive Date: 20180815
  Receipt Date: 20200814
  Transmission Date: 20201102
  Serious: Yes (Other)
  Sender: FDA-Public Use
  Company Number: US-BRISTOL-MYERS SQUIBB COMPANY-BMS-2018-072602

PATIENT
  Age: 74 Year
  Sex: Male

DRUGS (1)
  1. NULOJIX [Suspect]
     Active Substance: BELATACEPT
     Indication: LIVER TRANSPLANT
     Dosage: 5 MG/KG, QMO
     Route: 042

REACTIONS (2)
  - Post transplant lymphoproliferative disorder [Unknown]
  - Intentional product use issue [Unknown]
